FAERS Safety Report 23310154 (Version 2)
Quarter: 2024Q1

REPORT INFORMATION
  Report Type: Spontaneous
  Country: US (occurrence: US)
  Receive Date: 20231218
  Receipt Date: 20240206
  Transmission Date: 20240410
  Serious: Yes (Hospitalization, Disabling, Other)
  Sender: FDA-Public Use
  Company Number: US-SA-2023SA389622

PATIENT
  Age: 70 Year
  Sex: Male

DRUGS (2)
  1. ELOCTATE [Suspect]
     Active Substance: EFMOROCTOCOG ALFA
     Dosage: 3300 U
     Route: 042
  2. ELOCTATE [Suspect]
     Active Substance: EFMOROCTOCOG ALFA
     Dosage: 3300 U
     Route: 042

REACTIONS (7)
  - Seizure [Unknown]
  - Hip arthroplasty [Unknown]
  - Bedridden [Unknown]
  - Pelvic bone injury [Unknown]
  - Skeletal injury [Unknown]
  - Haemorrhage [Recovered/Resolved]
  - Spontaneous haemorrhage [Unknown]

NARRATIVE: CASE EVENT DATE: 20230101
